FAERS Safety Report 4504554-6 (Version None)
Quarter: 2004Q4

REPORT INFORMATION
  Report Type: 
  Country: None (occurrence: None)
  Receive Date: 20041116
  Receipt Date: 20040820
  Transmission Date: 20050328
  Serious: Yes (Life-Threatening, Disabling)
  Sender: FDA-Public Use
  Company Number: 8712

PATIENT
  Age: 84 Year
  Sex: Male

DRUGS (5)
  1. AMIODARONE [Suspect]
     Indication: ATRIAL FIBRILLATION
     Dosage: 200 MG PO
     Route: 048
     Dates: start: 20010802, end: 20040714
  2. WARFARIN [Concomitant]
  3. LISINOPRIL [Concomitant]
  4. FRUSEMIDE [Concomitant]
  5. AMLODIPINE [Concomitant]

REACTIONS (3)
  - ANOREXIA [None]
  - PULMONARY FIBROSIS [None]
  - WEIGHT DECREASED [None]
